FAERS Safety Report 23359093 (Version 1)
Quarter: 2024Q1

REPORT INFORMATION
  Report Type: Spontaneous
  Country: CN (occurrence: CN)
  Receive Date: 20240102
  Receipt Date: 20240102
  Transmission Date: 20240409
  Serious: Yes (Hospitalization)
  Sender: FDA-Public Use
  Company Number: CN-BoehringerIngelheim-2023-BI-280339

PATIENT
  Age: 35 Year
  Sex: Male

DRUGS (1)
  1. ALTEPLASE [Suspect]
     Active Substance: ALTEPLASE
     Indication: Thrombolysis
     Dosage: MOST RECENT DOSE ADMINISTERED BEFORE AE: 21/DEC/2023
     Route: 042
     Dates: start: 20231220

REACTIONS (3)
  - Haemorrhage intracranial [Recovered/Resolved]
  - Brain herniation [Recovered/Resolved]
  - Headache [Recovered/Resolved]

NARRATIVE: CASE EVENT DATE: 20231221
